FAERS Safety Report 11798643 (Version 2)
Quarter: 2015Q4

REPORT INFORMATION
  Report Type: Report from Study
  Country: US (occurrence: US)
  Receive Date: 20151203
  Receipt Date: 20151211
  Transmission Date: 20160305
  Serious: Yes (Hospitalization)
  Sender: FDA-Public Use
  Company Number: US-ABBVIE-15K-163-1510483-00

PATIENT
  Age: 26 Year
  Sex: Male
  Weight: 68.1 kg

DRUGS (2)
  1. PAXIL [Concomitant]
     Active Substance: PAROXETINE HYDROCHLORIDE
     Indication: PRODUCT USED FOR UNKNOWN INDICATION
  2. HUMIRA [Suspect]
     Active Substance: ADALIMUMAB
     Indication: CROHN^S DISEASE
     Route: 058
     Dates: start: 20120601

REACTIONS (4)
  - Intestinal stenosis [Recovered/Resolved]
  - Abdominal pain [Unknown]
  - Procedural pain [Unknown]
  - Intestinal fistula [Recovered/Resolved]

NARRATIVE: CASE EVENT DATE: 2014
